FAERS Safety Report 6530080-9 (Version None)
Quarter: 2009Q4

REPORT INFORMATION
  Report Type: 
  Country: None (occurrence: None)
  Receive Date: 20091231
  Receipt Date: 20091217
  Transmission Date: 20100525
  Serious: Yes (Hospitalization, Disabling, Other)
  Sender: FDA-Public Use
  Company Number: AUR-APL-2009-01617

PATIENT
  Age: 76 Year
  Sex: Male

DRUGS (1)
  1. CLINDAMYCIN [Suspect]
     Indication: WOUND INFECTION
     Dosage: 300MG - TID - ORAL
     Route: 048

REACTIONS (4)
  - DRUG ERUPTION [None]
  - FOOT AMPUTATION [None]
  - OSTEOMYELITIS [None]
  - VASCULITIS NECROTISING [None]
